FAERS Safety Report 18597311 (Version 1)
Quarter: 2020Q4

REPORT INFORMATION
  Report Type: Spontaneous
  Country: US (occurrence: US)
  Receive Date: 20201209
  Receipt Date: 20201209
  Transmission Date: 20210114
  Serious: No
  Sender: FDA-Public Use
  Company Number: US-IBSA PHARMA INC.-2020IBS000050

PATIENT

DRUGS (3)
  1. TIROSINT [Suspect]
     Active Substance: LEVOTHYROXINE SODIUM
     Dosage: 25 ?G, QOD
     Route: 048
     Dates: start: 202001
  2. TIROSINT [Suspect]
     Active Substance: LEVOTHYROXINE SODIUM
     Dosage: 25 ?G, QD
     Route: 048
     Dates: start: 20190619
  3. TIROSINT [Suspect]
     Active Substance: LEVOTHYROXINE SODIUM
     Indication: THYROID DISORDER
     Dosage: 75 ?G, QD
     Route: 048
     Dates: start: 20181017, end: 20190619

REACTIONS (20)
  - Balance disorder [Unknown]
  - Hyperacusis [Unknown]
  - Dysphonia [Recovering/Resolving]
  - Unevaluable event [Recovering/Resolving]
  - Product tampering [Unknown]
  - Dizziness [Unknown]
  - Hair injury [Recovering/Resolving]
  - Tremor [Unknown]
  - Vision blurred [Unknown]
  - Accidental underdose [Unknown]
  - Feeling abnormal [Unknown]
  - Alopecia [Not Recovered/Not Resolved]
  - Dyspnoea [Recovering/Resolving]
  - Peripheral coldness [Unknown]
  - Hypoaesthesia [Unknown]
  - Hair growth abnormal [Recovering/Resolving]
  - Cough [Recovering/Resolving]
  - Choking sensation [Recovering/Resolving]
  - Rhinorrhoea [Unknown]
  - Ear discomfort [Unknown]

NARRATIVE: CASE EVENT DATE: 202001
